FAERS Safety Report 4759933-9 (Version None)
Quarter: 2005Q3

REPORT INFORMATION
  Report Type: 
  Country: None (occurrence: None)
  Receive Date: 20050902
  Receipt Date: 20050825
  Transmission Date: 20060218
  Serious: Yes (Hospitalization)
  Sender: FDA-Public Use
  Company Number: PT-ABBOTT-05P-130-0309420-00

PATIENT
  Sex: Female
  Weight: 60 kg

DRUGS (2)
  1. BIAXIN [Suspect]
     Indication: PNEUMONIA
     Route: 042
     Dates: start: 20050725, end: 20050802
  2. ACENOCOUMAROL [Interacting]
     Indication: DRUG USE FOR UNKNOWN INDICATION
     Route: 048
     Dates: start: 20050726

REACTIONS (3)
  - DRUG INTERACTION [None]
  - INTERNATIONAL NORMALISED RATIO INCREASED [None]
  - PROTHROMBIN TIME PROLONGED [None]
